FAERS Safety Report 7988492-2 (Version None)
Quarter: 2011Q4

REPORT INFORMATION
  Report Type: 
  Country: None (occurrence: None)
  Receive Date: 20111216
  Receipt Date: 20111207
  Transmission Date: 20120403
  Serious: Yes (Hospitalization, Other)
  Sender: FDA-Public Use
  Company Number: US-ASTRAZENECA-2010SE52085

PATIENT
  Age: 79 Year
  Sex: Female

DRUGS (2)
  1. ARIMIDEX [Suspect]
     Indication: BREAST CANCER
     Route: 048
  2. NEXIUM [Suspect]
     Route: 048

REACTIONS (11)
  - CHOLECYSTITIS CHRONIC [None]
  - OEDEMA PERIPHERAL [None]
  - GOUT [None]
  - PAIN IN EXTREMITY [None]
  - NEOPLASM MALIGNANT [None]
  - GASTROOESOPHAGEAL REFLUX DISEASE [None]
  - FOOT FRACTURE [None]
  - WEIGHT INCREASED [None]
  - HIATUS HERNIA [None]
  - NERVE INJURY [None]
  - GASTRITIS [None]
